FAERS Safety Report 24748807 (Version 3)
Quarter: 2025Q1

REPORT INFORMATION
  Report Type: Spontaneous
  Country: US (occurrence: US)
  Receive Date: 20241218
  Receipt Date: 20250322
  Transmission Date: 20250409
  Serious: No
  Sender: MERCK SHARP & DOHME LLC
  Company Number: US-009507513-2412USA004100

PATIENT
  Sex: Male

DRUGS (3)
  1. BELSOMRA [Suspect]
     Active Substance: SUVOREXANT
     Indication: Insomnia
     Route: 048
     Dates: start: 202409, end: 202411
  2. BELSOMRA [Suspect]
     Active Substance: SUVOREXANT
     Indication: Insomnia
     Dosage: DOSE DESCRIPTION : 20 MILLIGRAM, ONCE A NIGHT?DAILY DOSE : 20 MILLIGRAM
     Route: 048
     Dates: start: 20241211
  3. LORAZEPAM [Suspect]
     Active Substance: LORAZEPAM
     Indication: Sleep disorder

REACTIONS (5)
  - Drug ineffective [Unknown]
  - Sleep paralysis [Recovered/Resolved]
  - Product availability issue [Unknown]
  - Product dose omission issue [Unknown]
  - Product use issue [Unknown]

NARRATIVE: CASE EVENT DATE: 20240101
